FAERS Safety Report 9494166 (Version 1)
Quarter: 2013Q3

REPORT INFORMATION
  Report Type: Spontaneous
  Country: IT (occurrence: IT)
  Receive Date: 20130903
  Receipt Date: 20130903
  Transmission Date: 20140515
  Serious: Yes (Other)
  Sender: FDA-Public Use
  Company Number: PHHY2013IT095651

PATIENT
  Sex: Male

DRUGS (4)
  1. ZOMETA [Suspect]
     Indication: METASTASES TO BONE
     Dosage: 4 MG, CYCLIC
     Route: 042
     Dates: start: 20111122, end: 20130618
  2. DELTACORTENE [Suspect]
     Indication: PROSTATE CANCER METASTATIC
     Dosage: 10 MG, DAILY
     Route: 048
     Dates: start: 20111122, end: 20130616
  3. ABIRATERONE [Concomitant]
     Indication: PROSTATE CANCER METASTATIC
     Dosage: 1 G
     Route: 048
     Dates: start: 20120220, end: 20130618
  4. DECAPEPTYL                              /SCH/ [Concomitant]
     Dosage: 3.75 MG
     Route: 030

REACTIONS (1)
  - Osteonecrosis [Unknown]
